FAERS Safety Report 16361161 (Version 7)
Quarter: 2022Q1

REPORT INFORMATION
  Report Type: Report from Study
  Country: DE (occurrence: DE)
  Receive Date: 20190528
  Receipt Date: 20220302
  Transmission Date: 20220424
  Serious: Yes (Hospitalization, Disabling, Other)
  Sender: FDA-Public Use
  Company Number: None

PATIENT
  Age: 67 Year
  Sex: Female
  Weight: 130 kg

DRUGS (73)
  1. DOXIL [Suspect]
     Active Substance: DOXORUBICIN HYDROCHLORIDE
     Indication: Diffuse large B-cell lymphoma
     Route: 041
     Dates: start: 20190222, end: 20190222
  2. DOXIL [Suspect]
     Active Substance: DOXORUBICIN HYDROCHLORIDE
     Route: 041
     Dates: start: 20190315, end: 20190315
  3. DOXIL [Suspect]
     Active Substance: DOXORUBICIN HYDROCHLORIDE
     Route: 041
     Dates: start: 20190406, end: 20190406
  4. DOXIL [Suspect]
     Active Substance: DOXORUBICIN HYDROCHLORIDE
     Route: 041
     Dates: start: 20190427, end: 20190427
  5. DOXIL [Suspect]
     Active Substance: DOXORUBICIN HYDROCHLORIDE
     Route: 041
     Dates: start: 20190516
  6. DOXIL [Suspect]
     Active Substance: DOXORUBICIN HYDROCHLORIDE
     Route: 041
     Dates: start: 20190606, end: 20190606
  7. RITUXIMAB [Suspect]
     Active Substance: RITUXIMAB
     Indication: Diffuse large B-cell lymphoma
     Route: 041
     Dates: start: 20190221, end: 20190221
  8. RITUXIMAB [Suspect]
     Active Substance: RITUXIMAB
     Route: 041
     Dates: start: 20190314, end: 20190314
  9. RITUXIMAB [Suspect]
     Active Substance: RITUXIMAB
     Route: 041
     Dates: start: 20190405, end: 20190405
  10. RITUXIMAB [Suspect]
     Active Substance: RITUXIMAB
     Route: 041
     Dates: start: 20190426, end: 20190426
  11. RITUXIMAB [Suspect]
     Active Substance: RITUXIMAB
     Route: 041
     Dates: start: 20190315, end: 20190315
  12. RITUXIMAB [Suspect]
     Active Substance: RITUXIMAB
     Route: 041
     Dates: start: 20190516, end: 20190516
  13. RITUXIMAB [Suspect]
     Active Substance: RITUXIMAB
     Route: 041
     Dates: start: 20190606
  14. PREDNISONE [Suspect]
     Active Substance: PREDNISONE
     Indication: Diffuse large B-cell lymphoma
     Route: 048
     Dates: start: 20190222, end: 20190226
  15. PREDNISONE [Suspect]
     Active Substance: PREDNISONE
     Route: 048
     Dates: start: 20190315, end: 20190319
  16. PREDNISONE [Suspect]
     Active Substance: PREDNISONE
     Route: 048
     Dates: start: 20190406, end: 20190410
  17. PREDNISONE [Suspect]
     Active Substance: PREDNISONE
     Route: 048
     Dates: start: 20190427, end: 20190501
  18. PREDNISONE [Suspect]
     Active Substance: PREDNISONE
     Route: 048
     Dates: start: 20190516, end: 20190520
  19. PREDNISONE [Suspect]
     Active Substance: PREDNISONE
     Route: 048
     Dates: start: 20190606, end: 20190610
  20. VINCRISTINE [Suspect]
     Active Substance: VINCRISTINE
     Indication: Diffuse large B-cell lymphoma
     Route: 041
     Dates: start: 20190222, end: 20190222
  21. VINCRISTINE [Suspect]
     Active Substance: VINCRISTINE
     Route: 041
     Dates: start: 20190315, end: 20190315
  22. VINCRISTINE [Suspect]
     Active Substance: VINCRISTINE
     Route: 041
     Dates: start: 20190406, end: 20190406
  23. VINCRISTINE [Suspect]
     Active Substance: VINCRISTINE
     Route: 041
     Dates: start: 20190427, end: 20190427
  24. VINCRISTINE [Suspect]
     Active Substance: VINCRISTINE
     Route: 041
     Dates: start: 20190606, end: 20190606
  25. VINCRISTINE [Suspect]
     Active Substance: VINCRISTINE
     Route: 041
     Dates: start: 20190516, end: 20190516
  26. CYCLOPHOSPHAMIDE [Suspect]
     Active Substance: CYCLOPHOSPHAMIDE
     Indication: Diffuse large B-cell lymphoma
     Route: 041
     Dates: start: 20190222, end: 20190222
  27. CYCLOPHOSPHAMIDE [Suspect]
     Active Substance: CYCLOPHOSPHAMIDE
     Route: 041
     Dates: start: 20190315, end: 20190315
  28. CYCLOPHOSPHAMIDE [Suspect]
     Active Substance: CYCLOPHOSPHAMIDE
     Route: 041
     Dates: start: 20190406, end: 20190406
  29. CYCLOPHOSPHAMIDE [Suspect]
     Active Substance: CYCLOPHOSPHAMIDE
     Route: 041
     Dates: start: 20190427, end: 20190427
  30. CYCLOPHOSPHAMIDE [Suspect]
     Active Substance: CYCLOPHOSPHAMIDE
     Route: 041
     Dates: start: 20190516, end: 20190516
  31. CYCLOPHOSPHAMIDE [Suspect]
     Active Substance: CYCLOPHOSPHAMIDE
     Route: 041
     Dates: start: 20190606, end: 20190606
  32. LEVOFLOXACIN [Concomitant]
     Active Substance: LEVOFLOXACIN
     Indication: General physical health deterioration
     Route: 048
     Dates: start: 20190304
  33. MOVICOL [Concomitant]
     Active Substance: POLYETHYLENE GLYCOL 3350\POTASSIUM CHLORIDE\SODIUM BICARBONATE\SODIUM CHLORIDE
     Indication: General physical health deterioration
     Route: 048
     Dates: start: 20190304
  34. SODIUM CHLORIDE [Concomitant]
     Active Substance: SODIUM CHLORIDE
     Indication: General physical health deterioration
     Route: 042
     Dates: start: 20190224, end: 20190301
  35. SODIUM CHLORIDE [Concomitant]
     Active Substance: SODIUM CHLORIDE
     Route: 042
     Dates: start: 20190516, end: 20190516
  36. AMPHO-MORONAL [Concomitant]
     Active Substance: AMPHOTERICIN B
     Indication: Prophylaxis
     Route: 048
     Dates: start: 20190221
  37. ZOPICLONE [Concomitant]
     Active Substance: ZOPICLONE
     Indication: General physical health deterioration
     Route: 048
     Dates: start: 20190223, end: 20190223
  38. LASIX [Concomitant]
     Active Substance: FUROSEMIDE
     Indication: General physical health deterioration
     Route: 042
     Dates: start: 20190224, end: 20190228
  39. RANITIDINE HYDROCHLORIDE [Concomitant]
     Active Substance: RANITIDINE HYDROCHLORIDE
     Indication: General physical health deterioration
     Route: 042
     Dates: start: 20190221, end: 20190221
  40. RANITIDINE HYDROCHLORIDE [Concomitant]
     Active Substance: RANITIDINE HYDROCHLORIDE
     Route: 042
     Dates: start: 20190516, end: 20190516
  41. BISOPROLOL [Concomitant]
     Active Substance: BISOPROLOL
     Indication: Hypertension
     Route: 048
     Dates: start: 20190221
  42. MESNA [Concomitant]
     Active Substance: MESNA
     Indication: General physical health deterioration
     Dosage: 100 MG/ML
     Route: 042
     Dates: start: 20190222, end: 20190222
  43. GRANISETRON [Concomitant]
     Active Substance: GRANISETRON
     Indication: General physical health deterioration
     Route: 042
     Dates: start: 20190222, end: 20190222
  44. MELPERONE [Concomitant]
     Active Substance: MELPERONE
     Indication: General physical health deterioration
     Route: 048
     Dates: start: 20190224, end: 20190228
  45. ALLOPURINOL [Concomitant]
     Active Substance: ALLOPURINOL
     Indication: General physical health deterioration
     Route: 048
     Dates: start: 20190221
  46. VALTREX [Concomitant]
     Active Substance: VALACYCLOVIR HYDROCHLORIDE
     Indication: Prophylaxis
     Route: 048
     Dates: start: 20190220, end: 20190303
  47. VALTREX [Concomitant]
     Active Substance: VALACYCLOVIR HYDROCHLORIDE
     Route: 048
     Dates: start: 20190830
  48. INNOHEP [Concomitant]
     Active Substance: TINZAPARIN SODIUM
     Indication: Prophylaxis
     Route: 058
     Dates: start: 20190220, end: 20190228
  49. INNOHEP [Concomitant]
     Active Substance: TINZAPARIN SODIUM
     Indication: Pancytopenia
     Route: 065
     Dates: start: 20190507, end: 20190510
  50. INNOHEP [Concomitant]
     Active Substance: TINZAPARIN SODIUM
     Route: 042
     Dates: start: 20190807, end: 20190807
  51. DESLORATADINE [Concomitant]
     Active Substance: DESLORATADINE
     Indication: General physical health deterioration
     Route: 048
     Dates: start: 20190220
  52. VALACYCLOVIR HYDROCHLORIDE [Concomitant]
     Active Substance: VALACYCLOVIR HYDROCHLORIDE
     Indication: Prophylaxis
     Route: 048
     Dates: start: 20190220, end: 20190303
  53. CALCIUM CHLORIDE\MAGNESIUM CHLORIDE\POTASSIUM CHLORIDE\SODIUM ACETATE\ [Concomitant]
     Active Substance: CALCIUM CHLORIDE\MAGNESIUM CHLORIDE\POTASSIUM CHLORIDE\SODIUM ACETATE\SODIUM CHLORIDE
     Indication: General physical health deterioration
     Route: 042
     Dates: start: 20190220, end: 20190224
  54. PREDNISOLONE SODIUM SUCCINATE [Concomitant]
     Active Substance: PREDNISOLONE SODIUM SUCCINATE
     Indication: Product used for unknown indication
     Route: 042
     Dates: start: 20190221, end: 20190221
  55. CHOLECALCIFEROL [Concomitant]
     Active Substance: CHOLECALCIFEROL
     Indication: General physical health deterioration
     Route: 048
     Dates: start: 20190221
  56. NEULASTA [Concomitant]
     Active Substance: PEGFILGRASTIM
     Indication: General physical health deterioration
     Route: 058
     Dates: start: 20190225, end: 20190225
  57. PANTOPRAZOLE SODIUM [Concomitant]
     Active Substance: PANTOPRAZOLE SODIUM
     Indication: General physical health deterioration
     Route: 048
     Dates: start: 20190304
  58. SULFAMETHOXAZOLE\TRIMETHOPRIM [Concomitant]
     Active Substance: SULFAMETHOXAZOLE\TRIMETHOPRIM
     Indication: Prophylaxis
     Route: 048
     Dates: start: 20190222
  59. LAVANID [Concomitant]
     Indication: General physical health deterioration
     Route: 062
     Dates: start: 20190220, end: 20190228
  60. CLEMASTINE FUMARATE [Concomitant]
     Active Substance: CLEMASTINE FUMARATE
     Indication: General physical health deterioration
     Route: 042
     Dates: start: 20190221, end: 20190221
  61. CLEMASTINE FUMARATE [Concomitant]
     Active Substance: CLEMASTINE FUMARATE
     Route: 042
     Dates: start: 20190516, end: 20190516
  62. MOMETASONE [Concomitant]
     Active Substance: MOMETASONE
     Indication: Dermatitis
     Route: 062
     Dates: start: 20190225, end: 20190303
  63. ACETAMINOPHEN [Concomitant]
     Active Substance: ACETAMINOPHEN
     Indication: General physical health deterioration
     Route: 048
     Dates: start: 20190516, end: 20190516
  64. FORTECORTIN                        /00016001/ [Concomitant]
     Indication: Diffuse large B-cell lymphoma
     Route: 065
     Dates: start: 20190516, end: 20190516
  65. FORTECORTIN                        /00016001/ [Concomitant]
     Route: 065
     Dates: start: 20190831
  66. TINZAPARIN [Concomitant]
     Active Substance: TINZAPARIN
     Indication: Pancytopenia
     Route: 065
     Dates: start: 20190507, end: 20190510
  67. TINZAPARIN [Concomitant]
     Active Substance: TINZAPARIN
     Indication: General physical health deterioration
     Route: 058
     Dates: start: 20190220, end: 20190228
  68. TINZAPARIN [Concomitant]
     Active Substance: TINZAPARIN
     Indication: Prophylaxis
  69. TAVOR [Concomitant]
     Indication: General physical health deterioration
     Route: 048
     Dates: start: 20190831, end: 20190831
  70. TORSEMIDE [Concomitant]
     Active Substance: TORSEMIDE
     Indication: General physical health deterioration
     Route: 048
     Dates: start: 20190807
  71. METOPROLOL [Concomitant]
     Active Substance: METOPROLOL
     Indication: General physical health deterioration
     Route: 048
     Dates: start: 20190807
  72. GRANISETRON HYDROCHLORIDE [Concomitant]
     Active Substance: GRANISETRON HYDROCHLORIDE
     Indication: General physical health deterioration
     Route: 042
     Dates: start: 20190516, end: 20190516
  73. LEVOTHYROXINE SODIUM [Concomitant]
     Active Substance: LEVOTHYROXINE SODIUM
     Indication: General physical health deterioration
     Route: 048
     Dates: start: 20190807

REACTIONS (18)
  - Pancytopenia [Recovered/Resolved]
  - Tumour lysis syndrome [Recovered/Resolved]
  - Metastases to central nervous system [Not Recovered/Not Resolved]
  - Neutropenic sepsis [Unknown]
  - Acute kidney injury [Unknown]
  - Leukopenia [Not Recovered/Not Resolved]
  - Neutropenia [Unknown]
  - Mobility decreased [Not Recovered/Not Resolved]
  - Urinary retention [Not Recovered/Not Resolved]
  - Pyrexia [Recovered/Resolved]
  - Communication disorder [Not Recovered/Not Resolved]
  - Personality change [Not Recovered/Not Resolved]
  - Memory impairment [Not Recovered/Not Resolved]
  - Anaemia [Not Recovered/Not Resolved]
  - Cough [Unknown]
  - Dermatitis [Recovered/Resolved]
  - Off label use [Unknown]
  - Product use in unapproved indication [Unknown]

NARRATIVE: CASE EVENT DATE: 20190201
